FAERS Safety Report 5280944-1 (Version None)
Quarter: 2007Q1

REPORT INFORMATION
  Report Type: 
  Country: None (occurrence: None)
  Receive Date: 20070329
  Receipt Date: 20070319
  Transmission Date: 20070707
  Serious: Yes (Other)
  Sender: FDA-Public Use
  Company Number: US-SHR-US-2007-008691

PATIENT
  Age: 48 Year
  Sex: Male
  Weight: 77.098 kg

DRUGS (9)
  1. BETASERON [Suspect]
     Indication: SECONDARY PROGRESSIVE MULTIPLE SCLEROSIS
     Dosage: 8 MIU, EVERY 2D
     Route: 058
     Dates: start: 19930101, end: 20050101
  2. BETASERON [Suspect]
     Dosage: 8 MIU, EVERY 2D
     Route: 058
     Dates: start: 20060601
  3. BETASERON [Suspect]
     Dates: start: 20050101, end: 20060130
  4. NEURONTIN [Concomitant]
  5. BACLOFEN [Concomitant]
  6. WELLBUTRIN [Concomitant]
  7. ZOCORT HC [Concomitant]
  8. ANTIHYPERTENSIVES [Concomitant]
  9. SALMETEROL [Concomitant]

REACTIONS (4)
  - CEREBROVASCULAR ACCIDENT [None]
  - DISTURBANCE IN ATTENTION [None]
  - FRUSTRATION [None]
  - MEMORY IMPAIRMENT [None]
